FAERS Safety Report 9653629 (Version 3)
Quarter: 2013Q4

REPORT INFORMATION
  Report Type: Spontaneous
  Country: BR (occurrence: BR)
  Receive Date: 20131029
  Receipt Date: 20131231
  Transmission Date: 20140711
  Serious: Yes (Death, Hospitalization)
  Sender: FDA-Public Use
  Company Number: BR-SA-CERZ-1003086

PATIENT
  Age: 3 Year
  Sex: Female
  Weight: 11.36 kg

DRUGS (1)
  1. CEREZYME [Suspect]
     Indication: GAUCHER^S DISEASE
     Dosage: 60 U/KG
     Route: 042
     Dates: start: 20120904, end: 20130605

REACTIONS (2)
  - Respiratory failure [Fatal]
  - Pyrexia [Fatal]
